FAERS Safety Report 24809609 (Version 1)
Quarter: 2025Q1

REPORT INFORMATION
  Report Type: Spontaneous
  Country: PT (occurrence: PT)
  Receive Date: 20250106
  Receipt Date: 20250106
  Transmission Date: 20250409
  Serious: Yes (Hospitalization)
  Sender: MYLAN
  Company Number: PT-MYLANLABS-2024M1118234

PATIENT
  Age: 12 Year
  Sex: Male

DRUGS (2)
  1. SORAFENIB [Suspect]
     Active Substance: SORAFENIB
     Indication: Hepatocellular carcinoma
     Route: 065
  2. SORAFENIB [Suspect]
     Active Substance: SORAFENIB
     Route: 065

REACTIONS (1)
  - Drug ineffective [Unknown]
